FAERS Safety Report 8437724-5 (Version None)
Quarter: 2012Q2

REPORT INFORMATION
  Report Type: 
  Country: None (occurrence: None)
  Receive Date: 20120614
  Receipt Date: 20120303
  Transmission Date: 20120825
  Serious: No
  Sender: FDA-Public Use
  Company Number: US-GLAXOSMITHKLINE-A0968507A

PATIENT
  Age: 57 Year
  Sex: Female

DRUGS (3)
  1. NICORETTE (MINT) [Suspect]
     Indication: EX-TOBACCO USER
     Dates: start: 20110501, end: 20110501
  2. NICODERM CQ [Suspect]
     Indication: EX-TOBACCO USER
  3. NICODERM CQ [Suspect]
     Indication: EX-TOBACCO USER

REACTIONS (6)
  - ORAL MUCOSAL DISCOLOURATION [None]
  - NAUSEA [None]
  - INSOMNIA [None]
  - DRUG ADMINISTRATION ERROR [None]
  - HEADACHE [None]
  - DRUG INEFFECTIVE [None]
